FAERS Safety Report 5179943-X (Version None)
Quarter: 2006Q4

REPORT INFORMATION
  Report Type: 
  Country: None (occurrence: None)
  Receive Date: 20061211
  Receipt Date: 20061128
  Transmission Date: 20070319
  Serious: Yes (Other)
  Sender: FDA-Public Use
  Company Number: 2006147993

PATIENT
  Sex: Male

DRUGS (1)
  1. LIPITOR [Suspect]
     Dosage: ORAL
     Route: 048
     Dates: end: 20061128

REACTIONS (2)
  - MUSCULAR WEAKNESS [None]
  - MYOPATHY [None]
